FAERS Safety Report 26083543 (Version 1)
Quarter: 2025Q4

REPORT INFORMATION
  Report Type: Spontaneous
  Country: IN (occurrence: IN)
  Receive Date: 20251124
  Receipt Date: 20251124
  Transmission Date: 20260118
  Serious: Yes (Other)
  Sender: INCYTE
  Company Number: IN-002147023-NVSC2025IN179341

PATIENT

DRUGS (1)
  1. RUXOLITINIB [Suspect]
     Active Substance: RUXOLITINIB
     Indication: Myelofibrosis
     Dosage: 5 MG, BID

REACTIONS (11)
  - Type 2 diabetes mellitus [Unknown]
  - White blood cell count increased [Unknown]
  - Platelet count increased [Unknown]
  - Hypertension [Unknown]
  - Blood glucose increased [Unknown]
  - Tachypnoea [Unknown]
  - Dizziness [Unknown]
  - Blood urea increased [Unknown]
  - Blood creatinine increased [Unknown]
  - Glycosylated haemoglobin increased [Unknown]
  - Haemoglobin increased [Unknown]
